FAERS Safety Report 19480691 (Version 2)
Quarter: 2021Q3

REPORT INFORMATION
  Report Type: Spontaneous
  Country: GB (occurrence: GB)
  Receive Date: 20210701
  Receipt Date: 20210928
  Transmission Date: 20211014
  Serious: Yes (Hospitalization, Other)
  Sender: FDA-Public Use
  Company Number: GB-SHIELD TX (UK) LTD-GB-STX-21-NOR-0026

PATIENT
  Age: 26 Year
  Sex: Female

DRUGS (5)
  1. PREDNISOLONE. [Suspect]
     Active Substance: PREDNISOLONE
     Indication: INFLAMMATORY BOWEL DISEASE
     Dosage: UNKNOWN
     Route: 048
     Dates: start: 20200607
  2. VEDOLIZUMAB [Suspect]
     Active Substance: VEDOLIZUMAB
     Indication: COLITIS ULCERATIVE
     Dosage: UNKNOWN
     Route: 042
     Dates: start: 20181003
  3. USTEKINUMAB [Concomitant]
     Active Substance: USTEKINUMAB
     Dates: start: 20201022, end: 20201217
  4. FERACCRU [Suspect]
     Active Substance: FERRIC MALTOL
     Indication: PRODUCT USED FOR UNKNOWN INDICATION
     Dosage: 30 MILLIGRAM, BID
     Route: 065
  5. FERROUS FUMARATE [Concomitant]
     Active Substance: FERROUS FUMARATE
     Dates: start: 20200607

REACTIONS (3)
  - Colitis ulcerative [Recovered/Resolved with Sequelae]
  - Nausea [Recovered/Resolved with Sequelae]
  - Gastrointestinal carcinoma [Recovered/Resolved with Sequelae]

NARRATIVE: CASE EVENT DATE: 202003
